FAERS Safety Report 8713537 (Version 2)
Quarter: 2012Q4

REPORT INFORMATION
  Report Type: Report from Study
  Country: CA (occurrence: CA)
  Receive Date: 20120808
  Receipt Date: 20120911
  Transmission Date: 20130627
  Serious: No
  Sender: FDA-Public Use
  Company Number: CA-UCBSA-062649

PATIENT
  Age: 64 Year
  Sex: Male
  Weight: 86.9 kg

DRUGS (13)
  1. LACOSAMIDE [Suspect]
     Dosage: BID (DOSE NOT REPORTED)
     Route: 048
     Dates: start: 20120705
  2. KEPPRA [Concomitant]
     Indication: EPILEPSY
     Route: 048
     Dates: start: 20120823
  3. KEPPRA [Concomitant]
     Indication: EPILEPSY
     Route: 048
     Dates: start: 20120809, end: 20120822
  4. KEPPRA [Concomitant]
     Indication: EPILEPSY
     Route: 048
     Dates: start: 20120727, end: 20120808
  5. KEPPRA [Concomitant]
     Indication: EPILEPSY
     Route: 048
     Dates: start: 20120126, end: 20120726
  6. KEPPRA [Concomitant]
     Indication: EPILEPSY
     Route: 048
     Dates: start: 20120112, end: 20120725
  7. REMERON [Concomitant]
     Indication: PARKINSON^S DISEASE
     Dates: start: 20110729
  8. CRESTOR [Concomitant]
     Indication: DYSLIPIDAEMIA
     Dates: start: 200707
  9. COVERSYL PLUS [Concomitant]
     Indication: HYPERTENSION
     Dosage: 1.25/4 MG QD
     Dates: start: 201112
  10. ASPIRIN [Concomitant]
     Dates: start: 200407
  11. VITAMIN E [Concomitant]
     Indication: VITAMIN SUPPLEMENTATION
     Dates: start: 201109
  12. COCONUT OIL [Concomitant]
     Indication: SUPPLEMENTATION THERAPY
     Dates: start: 20120508
  13. ZYCLARA [Concomitant]
     Indication: ACTINIC KERATOSIS
     Dosage: 1 APP QD
     Route: 061
     Dates: start: 20120626, end: 20120709

REACTIONS (1)
  - Loss of consciousness [Unknown]
